FAERS Safety Report 15456660 (Version 1)
Quarter: 2018Q3

REPORT INFORMATION
  Report Type: Spontaneous
  Country: US (occurrence: US)
  Receive Date: 20180928
  Receipt Date: 20180928
  Transmission Date: 20181010
  Serious: Yes (Hospitalization, Disabling)
  Sender: FDA-Public Use
  Company Number: None

PATIENT
  Age: 10 Month
  Sex: Male
  Weight: 8.55 kg

DRUGS (1)
  1. EQUATE CLEAR LAX [Suspect]
     Active Substance: POLYETHYLENE GLYCOL 3350
     Indication: CONSTIPATION
     Dosage: 4.25 TEASPOON(S); DAILY, ORAL?
     Route: 048
     Dates: start: 20180601, end: 20180901

REACTIONS (4)
  - Vomiting [None]
  - Drug ineffective [None]
  - Abdominal distension [None]
  - Flatulence [None]

NARRATIVE: CASE EVENT DATE: 20180816
